FAERS Safety Report 6178016-7 (Version None)
Quarter: 2009Q2

REPORT INFORMATION
  Report Type: 
  Country: None (occurrence: None)
  Receive Date: 20090504
  Receipt Date: 20090424
  Transmission Date: 20091009
  Serious: Yes (Other)
  Sender: FDA-Public Use
  Company Number: US-BAYER-200911334BCC

PATIENT
  Age: 50 Year
  Sex: Female

DRUGS (5)
  1. ASPIRIN [Suspect]
     Indication: DRUG USE FOR UNKNOWN INDICATION
  2. ABILIFY [Concomitant]
  3. IMIPRAMINE [Concomitant]
  4. LOVAZA [Concomitant]
  5. ORACEA [Concomitant]

REACTIONS (1)
  - INTRAOCULAR PRESSURE INCREASED [None]
